FAERS Safety Report 7169752-4 (Version None)
Quarter: 2010Q4

REPORT INFORMATION
  Report Type: 
  Country: None (occurrence: None)
  Receive Date: 20101217
  Receipt Date: 20100105
  Transmission Date: 20110411
  Serious: No
  Sender: FDA-Public Use
  Company Number: A0837729A

PATIENT
  Sex: Male

DRUGS (2)
  1. SORIATANE [Suspect]
     Dosage: 25MG PER DAY
     Route: 048
     Dates: start: 20100102
  2. ENBREL [Concomitant]

REACTIONS (1)
  - DRY MOUTH [None]
